FAERS Safety Report 4413744-2 (Version None)
Quarter: 2004Q2

REPORT INFORMATION
  Report Type: 
  Country: None (occurrence: None)
  Receive Date: 20040630
  Receipt Date: 20040304
  Transmission Date: 20050107
  Serious: No
  Sender: FDA-Public Use
  Company Number: 04P-163-0252237-00

PATIENT
  Age: 55 Year
  Sex: Female
  Weight: 81.1939 kg

DRUGS (8)
  1. HUMIRA [Suspect]
     Indication: RHEUMATOID ARTHRITIS
     Dosage: 40 MG, 1 IN 2 WK, SUBCUTANEOUS
     Route: 058
     Dates: start: 20040131
  2. METHOTREXATE [Concomitant]
  3. NABUMETONE [Concomitant]
  4. MULTIVITAMIN [Concomitant]
  5. VICODIN [Concomitant]
  6. ACETAMINOPHEN W/ CODEINE [Concomitant]
  7. ORPHENADRINE HYDROCHLORIDE FILM TAB [Concomitant]
  8. INHALER [Concomitant]

REACTIONS (2)
  - FURUNCLE [None]
  - PAIN [None]
